FAERS Safety Report 6600573-4 (Version None)
Quarter: 2010Q1

REPORT INFORMATION
  Report Type: 
  Country: None (occurrence: None)
  Receive Date: 20100224
  Receipt Date: 20100218
  Transmission Date: 20100710
  Serious: Yes (Death)
  Sender: FDA-Public Use
  Company Number: JP-BAYER-201010524BYL

PATIENT
  Age: 84 Year
  Sex: Female
  Weight: 35 kg

DRUGS (7)
  1. CIPROXAN-I.V. [Suspect]
     Indication: BACTERAEMIA
     Dosage: UNIT DOSE: 300 MG
     Route: 041
     Dates: start: 20100127, end: 20100131
  2. PASETOCIN [Suspect]
     Indication: BACTERAEMIA
     Route: 048
     Dates: start: 20100106, end: 20100125
  3. GRAMALIL [Suspect]
     Indication: DELIRIUM
     Route: 048
     Dates: start: 20100105, end: 20100131
  4. METILON [Suspect]
     Indication: PYREXIA
     Route: 030
     Dates: start: 20100127, end: 20100131
  5. WARFARIN SODIUM [Concomitant]
     Route: 048
     Dates: start: 20090601
  6. VASOLAN [Concomitant]
     Route: 048
     Dates: start: 20090601
  7. TAKEPRON [Concomitant]
     Route: 048
     Dates: start: 20100128

REACTIONS (1)
  - TOXIC EPIDERMAL NECROLYSIS [None]
